FAERS Safety Report 4706830-0 (Version None)
Quarter: 2005Q3

REPORT INFORMATION
  Report Type: 
  Country: None (occurrence: None)
  Receive Date: 20050705
  Receipt Date: 20050622
  Transmission Date: 20060218
  Serious: Yes (Other)
  Sender: FDA-Public Use
  Company Number: 2005086303

PATIENT
  Age: 82 Year
  Sex: Male
  Weight: 72.5755 kg

DRUGS (8)
  1. VIAGRA [Suspect]
     Indication: ERECTILE DYSFUNCTION
     Dosage: 50 MG (50 MG AS NECESSARY) ORAL
     Route: 048
     Dates: start: 20050501
  2. LIPITOR [Suspect]
     Indication: BLOOD CHOLESTEROL INCREASED
     Dosage: 10 MG (10 MG, 1 IN 1 D) ORAL
     Route: 048
  3. ACTOS [Concomitant]
  4. MIRAPEX [Concomitant]
  5. CARBIDOPA [Concomitant]
  6. FISH OIL [Concomitant]
  7. OSCAL (CALCIUM CARBONATE) [Concomitant]
  8. FLAXSEED OIL [Concomitant]

REACTIONS (4)
  - BLOOD CHOLESTEROL INCREASED [None]
  - CATARACT OPERATION [None]
  - EYE HAEMORRHAGE [None]
  - GLAUCOMA [None]
